FAERS Safety Report 6086240-7 (Version None)
Quarter: 2009Q1

REPORT INFORMATION
  Report Type: 
  Country: None (occurrence: None)
  Receive Date: 20090220
  Receipt Date: 20080226
  Transmission Date: 20090719
  Serious: No
  Sender: FDA-Public Use
  Company Number: US-ASTRAZENECA-2008UW03885

PATIENT
  Age: 22843 Day
  Sex: Female

DRUGS (4)
  1. PLENDIL [Suspect]
     Route: 048
     Dates: start: 20070601
  2. AMARYL [Suspect]
  3. PREMARIN [Concomitant]
  4. ASPIRIN [Concomitant]

REACTIONS (2)
  - BLOOD GLUCOSE INCREASED [None]
  - DRUG INTERACTION [None]
